FAERS Safety Report 20346970 (Version 1)
Quarter: 2022Q1

REPORT INFORMATION
  Report Type: Spontaneous
  Country: US (occurrence: US)
  Receive Date: 20220118
  Receipt Date: 20220118
  Transmission Date: 20220423
  Serious: Yes (Death, Other)
  Sender: FDA-Public Use
  Company Number: US-BAYER-2022A005063

PATIENT
  Age: 73 Year
  Sex: Male

DRUGS (3)
  1. REGORAFENIB [Suspect]
     Active Substance: REGORAFENIB
     Indication: Gastrointestinal stromal tumour
     Dosage: UNK
     Dates: start: 201608, end: 201804
  2. NILOTINIB [Suspect]
     Active Substance: NILOTINIB
     Dosage: UNK
     Dates: start: 201805, end: 201809
  3. PAZOPANIB [Suspect]
     Active Substance: PAZOPANIB
     Dosage: UNK
     Dates: start: 201809, end: 201812

REACTIONS (9)
  - Death [Fatal]
  - Acoustic neuroma [None]
  - Brain compression [None]
  - Facial paresis [None]
  - Gastrointestinal carcinoma [None]
  - Gait apraxia [None]
  - Unevaluable event [Recovered/Resolved]
  - Adverse drug reaction [None]
  - Anaemia [None]

NARRATIVE: CASE EVENT DATE: 20190101
